FAERS Safety Report 6101121-8 (Version None)
Quarter: 2009Q1

REPORT INFORMATION
  Report Type: 
  Country: None (occurrence: None)
  Receive Date: 20090304
  Receipt Date: 20090223
  Transmission Date: 20090719
  Serious: Yes (Hospitalization)
  Sender: FDA-Public Use
  Company Number: BE-AMGEN-UK313210

PATIENT
  Age: 70 Year
  Sex: Female
  Weight: 47 kg

DRUGS (5)
  1. NEUPOGEN [Suspect]
     Indication: CHEMOTHERAPY
     Route: 065
     Dates: start: 20080701
  2. NEULASTA [Suspect]
     Indication: CHEMOTHERAPY
     Route: 058
     Dates: start: 20080712, end: 20080712
  3. AMRUBICIN [Suspect]
     Route: 042
     Dates: start: 20080616
  4. DIFLUCAN [Concomitant]
  5. CEFUROXIME [Concomitant]

REACTIONS (4)
  - DRUG INEFFECTIVE [None]
  - LEUKOPENIA [None]
  - NEUTROPENIA [None]
  - PNEUMONIA [None]
